FAERS Safety Report 18234554 (Version 2)
Quarter: 2020Q4

REPORT INFORMATION
  Report Type: Spontaneous
  Country: US (occurrence: US)
  Receive Date: 20200904
  Receipt Date: 20201112
  Transmission Date: 20210113
  Serious: Yes (Hospitalization, Disabling, Other)
  Sender: FDA-Public Use
  Company Number: US-PURDUE-USA-2020-0164661

PATIENT
  Sex: Female

DRUGS (5)
  1. OXYCODONE HYDROCHLORIDE (SIMILAR TO NDA 22-272) [Suspect]
     Active Substance: OXYCODONE HYDROCHLORIDE
     Indication: PRODUCT USED FOR UNKNOWN INDICATION
     Dosage: UNK
     Route: 048
  2. DILAUDID [Suspect]
     Active Substance: HYDROMORPHONE HYDROCHLORIDE
     Indication: PRODUCT USED FOR UNKNOWN INDICATION
     Route: 048
  3. OXYCONTIN [Suspect]
     Active Substance: OXYCODONE HYDROCHLORIDE
     Indication: PRODUCT USED FOR UNKNOWN INDICATION
     Dosage: UNK
     Route: 048
     Dates: start: 2009
  4. OXYCODONE HCL TABLETS (RHODES 91-490) [Suspect]
     Active Substance: OXYCODONE HYDROCHLORIDE
     Indication: PRODUCT USED FOR UNKNOWN INDICATION
     Dosage: UNK
     Route: 048
  5. OXYCODONE/ ACETAMINOPHEN TABLETS [Suspect]
     Active Substance: ACETAMINOPHEN\OXYCODONE HYDROCHLORIDE
     Indication: PRODUCT USED FOR UNKNOWN INDICATION
     Dosage: UNK
     Route: 048

REACTIONS (26)
  - Hip arthroplasty [Unknown]
  - Knee arthroplasty [Unknown]
  - Muscle spasms [Unknown]
  - Back pain [Unknown]
  - Sciatica [Unknown]
  - Infusion [Unknown]
  - Drug withdrawal syndrome [Unknown]
  - Metabolic surgery [Unknown]
  - Hypersomnia [Unknown]
  - Wheelchair user [Unknown]
  - Blood pressure fluctuation [Unknown]
  - Intervertebral disc operation [Unknown]
  - Memory impairment [Unknown]
  - Kidney infection [Unknown]
  - Hypoaesthesia [Unknown]
  - Osteoarthritis [Unknown]
  - Drug dependence [Unknown]
  - Spinal decompression [Unknown]
  - Influenza [Unknown]
  - General physical health deterioration [Unknown]
  - Pain [Unknown]
  - Nervousness [Unknown]
  - Fatigue [Unknown]
  - Gait inability [Unknown]
  - Neck surgery [Unknown]
  - Fall [Unknown]

NARRATIVE: CASE EVENT DATE: 2009
